FAERS Safety Report 18162761 (Version 1)
Quarter: 2020Q3

REPORT INFORMATION
  Report Type: Spontaneous
  Country: US (occurrence: US)
  Receive Date: 20200818
  Receipt Date: 20200818
  Transmission Date: 20201103
  Serious: Yes (Hospitalization)
  Sender: FDA-Public Use
  Company Number: None

PATIENT
  Age: 27 Year
  Sex: Male
  Weight: 108.2 kg

DRUGS (1)
  1. ONCASPAR [Suspect]
     Active Substance: PEGASPARGASE
     Dates: end: 20200724

REACTIONS (6)
  - Cerebral venous sinus thrombosis [None]
  - Jugular vein thrombosis [None]
  - Cerebral artery embolism [None]
  - Cerebral ischaemia [None]
  - Photopsia [None]
  - Fall [None]

NARRATIVE: CASE EVENT DATE: 20200805
